FAERS Safety Report 21357086 (Version 2)
Quarter: 2023Q1

REPORT INFORMATION
  Report Type: Report from Study
  Country: US (occurrence: US)
  Receive Date: 20220921
  Receipt Date: 20230128
  Transmission Date: 20230418
  Serious: Yes (Hospitalization)
  Sender: FDA-Public Use
  Company Number: US-ABBVIE-4127140

PATIENT
  Sex: Female

DRUGS (3)
  1. SKYRIZI [Suspect]
     Active Substance: RISANKIZUMAB-RZAA
     Indication: Psoriasis
     Dosage: WEEK 0 AND WEEK 4 THEN EVERY 12 WEEKS
     Route: 058
  2. Pfizer/BioNTech Covid 19 Vaccine [Concomitant]
     Indication: COVID-19 immunisation
     Route: 030
  3. Pfizer/BioNTech Covid 19 Vaccine [Concomitant]
     Indication: COVID-19 immunisation
     Route: 030

REACTIONS (2)
  - Hospitalisation [Unknown]
  - Psoriasis [Unknown]
